FAERS Safety Report 12110899 (Version 1)
Quarter: 2016Q1

REPORT INFORMATION
  Report Type: Spontaneous
  Country: US (occurrence: US)
  Receive Date: 20160224
  Receipt Date: 20160224
  Transmission Date: 20160526
  Serious: Yes (Other)
  Sender: FDA-Public Use
  Company Number: US-BRISTOL-MYERS SQUIBB COMPANY-BMS-2016-010918

PATIENT
  Age: 81 Year
  Sex: Female
  Weight: 82.86 kg

DRUGS (1)
  1. COUMADINE [Suspect]
     Active Substance: WARFARIN SODIUM
     Indication: ATRIAL FIBRILLATION
     Dosage: 5 MG, UNK
     Route: 065

REACTIONS (4)
  - Stent placement [Unknown]
  - Myocardial infarction [Unknown]
  - Cardiac valve disease [Unknown]
  - Cardiac operation [Unknown]

NARRATIVE: CASE EVENT DATE: 201509
